FAERS Safety Report 8974645 (Version 2)
Quarter: 2015Q1

REPORT INFORMATION
  Report Type: Report from Study
  Country: FR (occurrence: FR)
  Receive Date: 20121219
  Receipt Date: 20150319
  Transmission Date: 20150721
  Serious: Yes (Death, Hospitalization, Other)
  Sender: FDA-Public Use
  Company Number: FR-ROCHE-668587

PATIENT
  Age: 31 Year
  Sex: Female
  Weight: 49 kg

DRUGS (8)
  1. RITUXIMAB [Suspect]
     Active Substance: RITUXIMAB
     Dosage: FORM: INFUSION
     Route: 042
     Dates: start: 20090918, end: 20090918
  2. RITUXIMAB [Suspect]
     Active Substance: RITUXIMAB
     Indication: RHEUMATOID ARTHRITIS
     Route: 041
  3. CORTANCYL [Concomitant]
     Active Substance: PREDNISONE
     Dosage: 8 MG/DAY
     Route: 065
  4. ZOMIGORO [Concomitant]
     Active Substance: ZOLMITRIPTAN
     Indication: MIGRAINE
     Route: 065
  5. DAFALGAN [Concomitant]
     Active Substance: ACETAMINOPHEN
     Indication: PAIN
     Dosage: 1 OR 2 TABLETS IF PAIN.
     Route: 065
  6. METHOTREXATE [Concomitant]
     Active Substance: METHOTREXATE
     Dosage: 10 MG/WEEK
     Route: 065
  7. CORTISONE [Concomitant]
     Active Substance: CORTISONE\HYDROCORTISONE
     Route: 065
  8. IMUREL [Suspect]
     Active Substance: AZATHIOPRINE SODIUM
     Indication: RHEUMATOID ARTHRITIS
     Route: 048
     Dates: start: 200901, end: 20090928

REACTIONS (8)
  - Cough [Not Recovered/Not Resolved]
  - Drug ineffective [Unknown]
  - Pulseless electrical activity [Fatal]
  - Chronic sinusitis [Not Recovered/Not Resolved]
  - Hepatocellular injury [Fatal]
  - Rhinitis [Not Recovered/Not Resolved]
  - Herpes virus infection [Fatal]
  - Blood bilirubin increased [Not Recovered/Not Resolved]

NARRATIVE: CASE EVENT DATE: 20090929
